FAERS Safety Report 9474913 (Version 1)
Quarter: 2013Q3

REPORT INFORMATION
  Report Type: Spontaneous
  Country: US (occurrence: None)
  Receive Date: 20130822
  Receipt Date: 20130822
  Transmission Date: 20140515
  Serious: Yes (Death)
  Sender: FDA-Public Use
  Company Number: None

PATIENT
  Age: 66 Year
  Sex: Male

DRUGS (1)
  1. NEXAVAR [Suspect]
     Dosage: STRENGTH: 200?400MG  BID  PO
     Route: 048
     Dates: start: 20121226, end: 20130807

REACTIONS (1)
  - Death [None]
